FAERS Safety Report 8415990-X (Version None)
Quarter: 2012Q2

REPORT INFORMATION
  Report Type: 
  Country: None (occurrence: None)
  Receive Date: 20120606
  Receipt Date: 20120503
  Transmission Date: 20120825
  Serious: No
  Sender: FDA-Public Use
  Company Number: US-PFIZER INC-2012124708

PATIENT
  Age: 68 Year
  Sex: Female
  Weight: 61.224 kg

DRUGS (1)
  1. MOTRIN IB [Suspect]
     Indication: INFLAMMATION
     Dosage: 400 MG, UNK
     Route: 048
     Dates: start: 20120430

REACTIONS (2)
  - PRODUCT CLOSURE REMOVAL DIFFICULT [None]
  - INJURY [None]
